FAERS Safety Report 26087359 (Version 1)
Quarter: 2025Q4

REPORT INFORMATION
  Report Type: Spontaneous
  Country: US (occurrence: None)
  Receive Date: 20251125
  Receipt Date: 20251125
  Transmission Date: 20260117
  Serious: Yes (Other)
  Sender: FDA-CTU
  Company Number: None

PATIENT
  Age: 46 Year
  Sex: Female
  Weight: 90.45 kg

DRUGS (12)
  1. BUPROPION [Suspect]
     Active Substance: BUPROPION
     Indication: Depression
     Dosage: OTHER QUANTITY : 1 TABLET(S);?
     Route: 048
     Dates: start: 20250717
  2. BUPROPION [Suspect]
     Active Substance: BUPROPION
     Indication: Menopausal symptoms
  3. Pad day [Concomitant]
  4. FLONASE [Concomitant]
     Active Substance: FLUTICASONE PROPIONATE
  5. VITAMIN D3 [Concomitant]
     Active Substance: CHOLECALCIFEROL
  6. BUPROPION [Concomitant]
     Active Substance: BUPROPION
  7. AMLODIPINE [Concomitant]
     Active Substance: AMLODIPINE BESYLATE
  8. ZYRTEC [Concomitant]
     Active Substance: CETIRIZINE HYDROCHLORIDE
  9. PROBIOTICS NOS [Concomitant]
     Active Substance: PROBIOTICS NOS
  10. FAMOTIDINE [Concomitant]
     Active Substance: FAMOTIDINE
  11. WEGOVY [Concomitant]
     Active Substance: SEMAGLUTIDE
  12. TEA TREE OIL [Concomitant]
     Active Substance: TEA TREE OIL

REACTIONS (1)
  - Onycholysis [None]

NARRATIVE: CASE EVENT DATE: 20250801
